FAERS Safety Report 7957222-2 (Version None)
Quarter: 2011Q4

REPORT INFORMATION
  Report Type: 
  Country: None (occurrence: None)
  Receive Date: 20111205
  Receipt Date: 20111122
  Transmission Date: 20120403
  Serious: Yes (Death)
  Sender: FDA-Public Use
  Company Number: JP-ALLERGAN-1114527US

PATIENT
  Age: 63 Year
  Sex: Female

DRUGS (5)
  1. ADSORBOCARPINE [Concomitant]
     Dosage: UNK
     Dates: start: 20100325
  2. DIAMOX SRC [Concomitant]
     Dosage: UNK
     Dates: start: 20100325, end: 20100401
  3. LUMIGAN [Suspect]
     Indication: ANGLE CLOSURE GLAUCOMA
     Dosage: 1 UNK, UNK
     Route: 047
     Dates: start: 20100325, end: 20110407
  4. MANNITOL [Concomitant]
     Dosage: UNK
     Dates: start: 20100325, end: 20100325
  5. GLUCONSAN K [Concomitant]
     Dosage: UNK
     Dates: start: 20100325, end: 20100401

REACTIONS (6)
  - GROWTH OF EYELASHES [None]
  - PNEUMONIA [None]
  - BLEPHARAL PIGMENTATION [None]
  - IRIS HYPERPIGMENTATION [None]
  - CEREBRAL HAEMORRHAGE [None]
  - PUNCTATE KERATITIS [None]
